FAERS Safety Report 5224345-0 (Version None)
Quarter: 2007Q1

REPORT INFORMATION
  Report Type: 
  Country: None (occurrence: None)
  Receive Date: 20070130
  Receipt Date: 20070122
  Transmission Date: 20070707
  Serious: Yes (Other)
  Sender: FDA-Public Use
  Company Number: BW-BOEHRINGER INGELHEIM PHARMACEUTICALS, INC.-2007-BP-01169BP

PATIENT
  Sex: Female

DRUGS (3)
  1. VIRAMUNE [Suspect]
     Indication: HIV INFECTION
     Dates: start: 20040617
  2. STAVUDINE [Suspect]
     Indication: HIV INFECTION
     Dates: start: 20040617
  3. LAMIVUDINE [Suspect]
     Indication: HIV INFECTION
     Dates: start: 20040617

REACTIONS (1)
  - LIPASE INCREASED [None]
